FAERS Safety Report 5343175-2 (Version None)
Quarter: 2007Q2

REPORT INFORMATION
  Report Type: 
  Country: None (occurrence: None)
  Receive Date: 20070416
  Receipt Date: 20070226
  Transmission Date: 20071010
  Serious: No
  Sender: FDA-Public Use
  Company Number: 2007SP000661

PATIENT
  Age: 25 Year
  Sex: Male
  Weight: 49.8957 kg

DRUGS (7)
  1. LUNESTA [Suspect]
     Dosage: SEE IMAGE
     Route: 048
     Dates: start: 20070222, end: 20070223
  2. LUNESTA [Suspect]
     Dosage: SEE IMAGE
     Route: 048
     Dates: start: 20070222, end: 20070223
  3. RITALIN [Concomitant]
  4. NASONEX [Concomitant]
  5. RISPERDAL [Concomitant]
  6. VITAMIN B-12 [Concomitant]
  7. TRAZODONE HCL [Concomitant]

REACTIONS (5)
  - ACCIDENTAL EXPOSURE [None]
  - BLOOD PRESSURE INCREASED [None]
  - EYE DISORDER [None]
  - HEART RATE INCREASED [None]
  - LETHARGY [None]
